FAERS Safety Report 5156370-2 (Version None)
Quarter: 2006Q4

REPORT INFORMATION
  Report Type: 
  Country: None (occurrence: None)
  Receive Date: 20061122
  Receipt Date: 20061114
  Transmission Date: 20070319
  Serious: Yes (Hospitalization)
  Sender: FDA-Public Use
  Company Number: ZW-GILEAD-2006-0010677

PATIENT
  Age: 31 Year
  Sex: Male
  Weight: 59.8 kg

DRUGS (8)
  1. EMTRIVA [Suspect]
     Indication: HIV INFECTION
     Route: 048
     Dates: start: 20060517, end: 20061022
  2. TENOFOVIR DISOPROXIL FUMARATE [Suspect]
     Indication: HIV INFECTION
     Route: 048
     Dates: start: 20060517, end: 20061027
  3. SUSTIVA [Suspect]
     Indication: HIV INFECTION
     Route: 048
     Dates: start: 20060517, end: 20061027
  4. COTRIM D.S. [Concomitant]
  5. ISONIAZID [Concomitant]
  6. RIFAMPICIN [Concomitant]
  7. PYRAZINAMIDE [Concomitant]
  8. ETHAMBUTOL HYDROCHLORIDE [Concomitant]

REACTIONS (1)
  - HEPATIC ENCEPHALOPATHY [None]
